FAERS Safety Report 6668857-1 (Version None)
Quarter: 2010Q2

REPORT INFORMATION
  Report Type: 
  Country: None (occurrence: None)
  Receive Date: 20100402
  Receipt Date: 20100322
  Transmission Date: 20101027
  Serious: Yes (Hospitalization)
  Sender: FDA-Public Use
  Company Number: A-NJ2010-34655

PATIENT
  Age: 66 Year
  Sex: Female

DRUGS (17)
  1. TRACLEER [Suspect]
     Indication: PULMONARY ARTERIAL HYPERTENSION
     Dosage: 125 MG, BID, ORAL
     Route: 048
     Dates: end: 20100303
  2. ALLEGRA [Concomitant]
  3. DIGOXIN [Concomitant]
  4. SYNTHROID [Concomitant]
  5. ALDACTONE [Concomitant]
  6. PROTONIX [Concomitant]
  7. NASONEX [Concomitant]
  8. COREG [Concomitant]
  9. LASIX [Concomitant]
  10. DIOVAN [Concomitant]
  11. EFFEXOR [Concomitant]
  12. CONCERTA [Concomitant]
  13. VALIUM [Concomitant]
  14. LUNESTA [Concomitant]
  15. WELLBUTRIN XL [Concomitant]
  16. REVATIO [Concomitant]
  17. COUMADIN [Concomitant]

REACTIONS (2)
  - FLATULENCE [None]
  - HEPATITIS CHOLESTATIC [None]
